FAERS Safety Report 10536059 (Version 2)
Quarter: 2014Q4

REPORT INFORMATION
  Report Type: Spontaneous
  Country: US (occurrence: US)
  Receive Date: 20141022
  Receipt Date: 20141022
  Transmission Date: 20150529
  Serious: No
  Sender: FDA-Public Use
  Company Number: US-RECKITT BENCKISER PHARMACEUTICAL, INC-RB-61018-2013

PATIENT

DRUGS (3)
  1. SUBOXONE [Suspect]
     Active Substance: BUPRENORPHINE HYDROCHLORIDE\NALOXONE HYDROCHLORIDE
     Indication: DRUG DEPENDENCE
     Dosage: SUBOXONE FILM
     Route: 060
     Dates: start: 20131116
  2. BUTRANS [Suspect]
     Active Substance: BUPRENORPHINE
     Indication: BACK PAIN
     Dosage: ONCE A WEEK AT A DOSE OF 10 MICROGRAMS/HOUR
     Route: 065
     Dates: start: 201312
  3. LISINOPRIL. [Concomitant]
     Active Substance: LISINOPRIL
     Indication: HYPERTENSION
     Dosage: DOSING DETAILS UNKNOWN
     Route: 048
     Dates: start: 2003

REACTIONS (9)
  - Off label use [Recovered/Resolved]
  - Constipation [Recovering/Resolving]
  - Drug ineffective for unapproved indication [Recovering/Resolving]
  - Prescribed overdose [Not Recovered/Not Resolved]
  - Urinary hesitation [Recovering/Resolving]
  - Intentional underdose [Unknown]
  - Oral administration complication [Unknown]
  - Headache [Recovering/Resolving]
  - Retching [Unknown]

NARRATIVE: CASE EVENT DATE: 20131116
